FAERS Safety Report 17575553 (Version 3)
Quarter: 2021Q4

REPORT INFORMATION
  Report Type: Spontaneous
  Country: VN (occurrence: VN)
  Receive Date: 20200324
  Receipt Date: 20211220
  Transmission Date: 20220303
  Serious: No
  Sender: FDA-Public Use
  Company Number: VN-ASTELLAS-2020US010420

PATIENT
  Age: 48 Year
  Sex: Male

DRUGS (5)
  1. TACROLIMUS [Suspect]
     Active Substance: TACROLIMUS
     Indication: Prophylaxis against transplant rejection
     Dosage: 0.1 MG/KG, TWICE DAILY
     Route: 048
     Dates: start: 20180203, end: 20180208
  2. TACROLIMUS [Suspect]
     Active Substance: TACROLIMUS
     Dosage: 0.1 MG/KG, ONCE DAILY
     Route: 048
     Dates: start: 20180209
  3. SIMULECT [Concomitant]
     Active Substance: BASILIXIMAB
     Indication: Prophylaxis against transplant rejection
     Dosage: 20 MG, (DAY 0 AND DAY 4)
     Route: 065
     Dates: start: 20180203
  4. SOLU-MEDROL [Concomitant]
     Active Substance: METHYLPREDNISOLONE SODIUM SUCCINATE
     Indication: Prophylaxis against transplant rejection
     Route: 065
     Dates: start: 20180203, end: 20180207
  5. MYCOPHENOLATE MOFETIL [Concomitant]
     Active Substance: MYCOPHENOLATE MOFETIL
     Indication: Prophylaxis against transplant rejection
     Route: 065
     Dates: start: 20180203

REACTIONS (6)
  - Immunosuppressant drug level increased [Recovered/Resolved]
  - Aspartate aminotransferase increased [Recovered/Resolved]
  - Alanine aminotransferase increased [Recovered/Resolved]
  - Hepatitis B DNA increased [Recovered/Resolved]
  - BK virus infection [Recovered/Resolved]
  - Blood glucose increased [Recovered/Resolved]

NARRATIVE: CASE EVENT DATE: 20180201
